FAERS Safety Report 11500596 (Version 2)
Quarter: 2015Q3

REPORT INFORMATION
  Report Type: Spontaneous
  Country: EG (occurrence: EG)
  Receive Date: 20150914
  Receipt Date: 20150922
  Transmission Date: 20151125
  Serious: Yes (Other)
  Sender: FDA-Public Use
  Company Number: EG-NOVOPROD-463064

PATIENT
  Age: 61 Year
  Sex: Male
  Weight: 90 kg

DRUGS (6)
  1. GLUCOPHAGE [Concomitant]
     Active Substance: METFORMIN HYDROCHLORIDE
     Indication: DIABETES MELLITUS
     Dosage: STARTED FROM 5 YRS
     Route: 048
  2. MIXTARD 30 HM PENFILL [Suspect]
     Active Substance: INSULIN HUMAN
     Dosage: 40 OR 35 UNITS AT MORNING BEFORE MEAL AND 20 UNITS AT NIGHT BEFORE MEAL
     Route: 058
  3. CONCOR 5 PLUS [Concomitant]
     Indication: HYPERTENSION
     Dosage: STARTED FROM 5 YRS,BEFORE BREAKFAST
     Route: 048
  4. CIDOPHAGE [Concomitant]
     Indication: DIABETES MELLITUS
     Dosage: AFTER MEAL,STARTED 10 YRS AGO,STOP DATE IS NOT REMEMBERED
     Route: 048
  5. MIXTARD 30 HM PENFILL [Suspect]
     Active Substance: INSULIN HUMAN
     Indication: DIABETES MELLITUS
     Dosage: 50 U, QD (30 UNITS AT MORNING BEFORE MEAL AND 20 UNITS AT NIGHT BEFORE MEAL)
     Route: 058
     Dates: start: 201009
  6. GLUCOPHAGE [Concomitant]
     Active Substance: METFORMIN HYDROCHLORIDE
     Dosage: 2 TAB, QD ((WITHOUT MEDICAL ADVICE)
     Route: 048

REACTIONS (2)
  - Coronary artery insufficiency [Unknown]
  - Hyperglycaemia [Not Recovered/Not Resolved]

NARRATIVE: CASE EVENT DATE: 201109
